FAERS Safety Report 5284543-7 (Version None)
Quarter: 2007Q2

REPORT INFORMATION
  Report Type: 
  Country: None (occurrence: None)
  Receive Date: 20070403
  Receipt Date: 20070326
  Transmission Date: 20071010
  Serious: Yes (Disabling)
  Sender: FDA-Public Use
  Company Number: ZA-GLAXOSMITHKLINE-B0460062A

PATIENT
  Age: 47 Year
  Sex: Male
  Weight: 82 kg

DRUGS (7)
  1. FLIXONASE [Suspect]
     Indication: DRUG USE FOR UNKNOWN INDICATION
     Route: 045
     Dates: start: 20051201, end: 20061001
  2. CETIRIZINE HCL [Concomitant]
  3. ACC 200 [Concomitant]
  4. FUNGIZONE [Concomitant]
  5. UNKNOWN DRUG [Concomitant]
  6. MEDROL [Concomitant]
  7. VALACYCLOVIR HCL [Concomitant]

REACTIONS (2)
  - LABYRINTHITIS [None]
  - TINNITUS [None]
